FAERS Safety Report 25593585 (Version 1)
Quarter: 2025Q3

REPORT INFORMATION
  Report Type: Spontaneous
  Country: US (occurrence: US)
  Receive Date: 20250722
  Receipt Date: 20250722
  Transmission Date: 20251020
  Serious: Yes (Other)
  Sender: ALEXION PHARMACEUTICALS
  Company Number: US-ASTRAZENECA-202507GLO012327US

PATIENT
  Sex: Female

DRUGS (9)
  1. NEXIUM [Suspect]
     Active Substance: ESOMEPRAZOLE MAGNESIUM
     Route: 065
  2. MONTELUKAST [Concomitant]
     Active Substance: MONTELUKAST
  3. ASPIRIN [Concomitant]
     Active Substance: ASPIRIN
  4. NORVASC [Concomitant]
     Active Substance: AMLODIPINE BESYLATE
  5. AMITIZA [Concomitant]
     Active Substance: LUBIPROSTONE
  6. LISINOPRIL [Concomitant]
     Active Substance: LISINOPRIL
  7. ZOFRAN [Concomitant]
     Active Substance: ONDANSETRON HYDROCHLORIDE
  8. XANAX [Concomitant]
     Active Substance: ALPRAZOLAM
  9. TYLENOL [Concomitant]
     Active Substance: ACETAMINOPHEN

REACTIONS (2)
  - Gastric cancer [Unknown]
  - Oesophageal adenocarcinoma [Unknown]
